FAERS Safety Report 6361552-8 (Version None)
Quarter: 2009Q3

REPORT INFORMATION
  Report Type: 
  Country: None (occurrence: None)
  Receive Date: 20090918
  Receipt Date: 20090909
  Transmission Date: 20100115
  Serious: Yes (Other)
  Sender: FDA-Public Use
  Company Number: CA-ASTRAZENECA-2009SE12778

PATIENT
  Age: 834 Month
  Sex: Female
  Weight: 83.9 kg

DRUGS (5)
  1. SYMBICORT [Suspect]
     Indication: CHRONIC OBSTRUCTIVE PULMONARY DISEASE
     Route: 055
     Dates: start: 20090625, end: 20090825
  2. OMEPRAZOLE [Concomitant]
     Indication: GASTROOESOPHAGEAL REFLUX DISEASE
  3. NORVASC [Concomitant]
     Indication: BLOOD PRESSURE
  4. ELTROXIN [Concomitant]
     Indication: HYPOTHYROIDISM
  5. NASONEX [Concomitant]
     Indication: SINUSITIS

REACTIONS (2)
  - BURNING SENSATION [None]
  - MUSCLE SPASMS [None]
